FAERS Safety Report 8555585-0 (Version None)
Quarter: 2012Q3

REPORT INFORMATION
  Report Type: 
  Country: None (occurrence: None)
  Receive Date: 20120731
  Receipt Date: 20110720
  Transmission Date: 20120928
  Serious: No
  Sender: FDA-Public Use
  Company Number: US-ASTRAZENECA-2010SE52857

PATIENT
  Age: 20657 Day
  Weight: 110 kg

DRUGS (21)
  1. SEROQUEL [Suspect]
     Indication: AGITATION
     Dosage: 25 MG TO 300 MG
     Route: 048
     Dates: start: 20031010
  2. SEROQUEL [Suspect]
     Route: 048
     Dates: start: 20050228
  3. SEROQUEL [Suspect]
     Indication: AFFECTIVE DISORDER
     Dosage: 25 MG TO 300 MG
     Route: 048
     Dates: start: 20031010
  4. PAROXETINE HCL [Concomitant]
     Indication: DEPRESSION
     Dosage: 10-30 MG DAILY
     Route: 048
     Dates: start: 19980408
  5. PSEUDOEPHEDRINE HCL [Concomitant]
     Indication: PULMONARY CONGESTION
     Dosage: 30-120 MG DAILY
     Route: 048
     Dates: start: 20001227
  6. SEROQUEL [Suspect]
     Indication: IRRITABILITY
     Dosage: 25 MG TO 300 MG
     Route: 048
     Dates: start: 20031010
  7. SEROQUEL [Suspect]
     Indication: ANXIETY
     Dosage: 25 MG TO 300 MG
     Route: 048
     Dates: start: 20031010
  8. PSEUDOEPHEDRINE HCL [Concomitant]
     Indication: COUGH
     Dosage: 30-120 MG DAILY
     Route: 048
     Dates: start: 20001227
  9. RANITIDINE HCL [Concomitant]
     Indication: ABDOMINAL DISCOMFORT
     Dosage: 300 MG TO 600 MG
     Route: 048
     Dates: start: 20000307
  10. REBETRON [Concomitant]
     Dosage: 1200/3 MIU PEN T3C BID AND INJECT 3 MILLION UNITS 3 TIMES A WEEK
     Dates: start: 20000728
  11. SEROQUEL [Suspect]
     Route: 048
     Dates: start: 20050228
  12. RISPERIDONE [Concomitant]
     Indication: AFFECTIVE DISORDER
     Dosage: 0.5 MG TO 1 MG
     Dates: start: 20090807
  13. SEROQUEL [Suspect]
     Indication: ANGER
     Dosage: 25 MG TO 300 MG
     Route: 048
     Dates: start: 20031010
  14. SEROQUEL [Suspect]
     Route: 048
     Dates: start: 20050228
  15. PSYLLIUM HYD MUCIL [Concomitant]
     Dosage: MIX 1 TABLESPOONFUL IN 8OZ LIQUID TWICE A DAY
     Dates: start: 20050505
  16. ACETAMINOPHEN W/ CODEINE [Concomitant]
     Dosage: 60-240 MG DAILY
     Route: 048
     Dates: start: 19950626
  17. SEROQUEL [Suspect]
     Indication: SLEEP DISORDER
     Dosage: 25 MG TO 300 MG
     Route: 048
     Dates: start: 20031010
  18. SEROQUEL [Suspect]
     Route: 048
     Dates: start: 20050228
  19. SEROQUEL [Suspect]
     Route: 048
     Dates: start: 20050228
  20. SEROQUEL [Suspect]
     Route: 048
     Dates: start: 20050228
  21. REBETRON [Concomitant]
     Dosage: 3 CAPS AM 3 CAPS PM DAILY
     Route: 048
     Dates: start: 20000830

REACTIONS (4)
  - WOUND [None]
  - CONSTIPATION [None]
  - DIABETES MELLITUS [None]
  - POST-TRAUMATIC STRESS DISORDER [None]
